FAERS Safety Report 7802698-4 (Version None)
Quarter: 2011Q4

REPORT INFORMATION
  Report Type: 
  Country: None (occurrence: None)
  Receive Date: 20111007
  Receipt Date: 20111005
  Transmission Date: 20120403
  Serious: Yes (Hospitalization, Other)
  Sender: FDA-Public Use
  Company Number: PHHY2010CA14109

PATIENT
  Sex: Female

DRUGS (1)
  1. SANDOSTATIN LAR [Suspect]
     Indication: NEUROENDOCRINE TUMOUR
     Dosage: 30 MG EVERY 4 WEEKS
     Route: 030
     Dates: start: 20070606

REACTIONS (5)
  - TERMINAL STATE [None]
  - MUSCLE TWITCHING [None]
  - MALAISE [None]
  - BLOOD PRESSURE INCREASED [None]
  - NEOPLASM MALIGNANT [None]
